FAERS Safety Report 21020501 (Version 1)
Quarter: 2022Q2

REPORT INFORMATION
  Report Type: Spontaneous
  Country: US (occurrence: US)
  Receive Date: 20220629
  Receipt Date: 20220629
  Transmission Date: 20220721
  Serious: Yes (Hospitalization, Other)
  Sender: FDA-Public Use
  Company Number: US-ROCHE-2576402

PATIENT
  Age: 45 Year
  Sex: Female
  Weight: 76.269 kg

DRUGS (20)
  1. CLONAZEPAM [Suspect]
     Active Substance: CLONAZEPAM
     Indication: Anxiety
     Dosage: AS NEEDED
     Route: 048
     Dates: start: 2003
  2. OCREVUS [Suspect]
     Active Substance: OCRELIZUMAB
     Indication: Relapsing-remitting multiple sclerosis
     Dosage: INFUSE 300 MG, DAY 0 AND 14 THEN 600 MG, EVERY 6 MONTHS?DATE OF TREATMENT: 02/JUN/2020
     Route: 042
     Dates: start: 2017, end: 2017
  3. OCREVUS [Suspect]
     Active Substance: OCRELIZUMAB
     Indication: Relapsing-remitting multiple sclerosis
     Dosage: RECEIVES INFUSION THROUGH ANTECUBITAL IV?DATE OF TREATMENT: 21/OCT/2020?FIRST TWO DOSES AT 300 MG,
     Route: 042
     Dates: start: 20201007, end: 20201021
  4. HERCEPTIN [Suspect]
     Active Substance: TRASTUZUMAB
     Indication: HER2 positive breast cancer
     Route: 065
     Dates: start: 2018
  5. PERJETA [Suspect]
     Active Substance: PERTUZUMAB
     Indication: HER2 positive breast cancer
     Route: 065
     Dates: start: 2018
  6. CARBOPLATIN [Concomitant]
     Active Substance: CARBOPLATIN
     Indication: HER2 positive breast cancer
     Route: 065
     Dates: start: 2018
  7. TAXOTERE [Concomitant]
     Active Substance: DOCETAXEL
     Indication: HER2 positive breast cancer
     Route: 065
     Dates: start: 2018
  8. MODAFINIL [Concomitant]
     Active Substance: MODAFINIL
     Indication: Fatigue
     Route: 048
     Dates: start: 2005
  9. MODAFINIL [Concomitant]
     Active Substance: MODAFINIL
     Indication: Multiple sclerosis
     Route: 048
     Dates: start: 2005
  10. AMPYRA [Concomitant]
     Active Substance: DALFAMPRIDINE
     Indication: Multiple sclerosis
     Route: 048
     Dates: start: 2014
  11. CYMBALTA [Concomitant]
     Active Substance: DULOXETINE HYDROCHLORIDE
     Indication: Depression
     Route: 048
     Dates: start: 2014
  12. CYMBALTA [Concomitant]
     Active Substance: DULOXETINE HYDROCHLORIDE
     Indication: Anxiety
     Route: 048
     Dates: start: 2014
  13. OXYBUTYNIN [Concomitant]
     Active Substance: OXYBUTYNIN
     Indication: Urinary incontinence
     Route: 048
     Dates: start: 2014
  14. GABAPENTIN [Concomitant]
     Active Substance: GABAPENTIN
     Indication: Cervical radiculopathy
     Route: 048
     Dates: start: 2009
  15. LATUDA [Concomitant]
     Active Substance: LURASIDONE HYDROCHLORIDE
     Indication: Schizophrenia
     Route: 048
     Dates: start: 2015
  16. LATUDA [Concomitant]
     Active Substance: LURASIDONE HYDROCHLORIDE
     Indication: Depression
     Route: 048
     Dates: start: 2015
  17. LATUDA [Concomitant]
     Active Substance: LURASIDONE HYDROCHLORIDE
     Indication: Post-traumatic stress disorder
     Route: 048
     Dates: start: 2015
  18. LATUDA [Concomitant]
     Active Substance: LURASIDONE HYDROCHLORIDE
     Indication: Bipolar disorder
     Route: 048
     Dates: start: 2015
  19. NEULASTA [Concomitant]
     Active Substance: PEGFILGRASTIM
     Route: 065
  20. ASPIRIN [Concomitant]
     Active Substance: ASPIRIN
     Route: 048
     Dates: start: 201802

REACTIONS (19)
  - Bipolar disorder [Not Recovered/Not Resolved]
  - Cardiac failure congestive [Not Recovered/Not Resolved]
  - Hypertension [Not Recovered/Not Resolved]
  - Breast cancer [Recovered/Resolved]
  - Tongue biting [Not Recovered/Not Resolved]
  - Cognitive disorder [Not Recovered/Not Resolved]
  - Fatigue [Not Recovered/Not Resolved]
  - Memory impairment [Not Recovered/Not Resolved]
  - Fall [Unknown]
  - Ligament sprain [Recovered/Resolved]
  - Feeling abnormal [Not Recovered/Not Resolved]
  - Anxiety [Recovered/Resolved]
  - Multiple sclerosis relapse [Not Recovered/Not Resolved]
  - Physical disability [Unknown]
  - Paralysis [Not Recovered/Not Resolved]
  - Head injury [Unknown]
  - Contusion [Not Recovered/Not Resolved]
  - Hypoaesthesia [Recovered/Resolved]
  - Muscular weakness [Not Recovered/Not Resolved]

NARRATIVE: CASE EVENT DATE: 20170825
